FAERS Safety Report 25283638 (Version 2)
Quarter: 2025Q2

REPORT INFORMATION
  Report Type: Spontaneous
  Country: US (occurrence: US)
  Receive Date: 20250508
  Receipt Date: 20250603
  Transmission Date: 20250716
  Serious: No
  Sender: TOLMAR
  Company Number: US-TOLMAR, INC.-25US057525

PATIENT

DRUGS (2)
  1. FENSOLVI [Suspect]
     Active Substance: LEUPROLIDE ACETATE
     Indication: Occupational exposure to product
     Dates: start: 20250307
  2. DEVICE [Suspect]
     Active Substance: DEVICE
     Indication: Occupational exposure to product

REACTIONS (2)
  - Injury associated with device [Unknown]
  - Occupational exposure to product [Unknown]

NARRATIVE: CASE EVENT DATE: 20250307
